FAERS Safety Report 19887197 (Version 1)
Quarter: 2021Q3

REPORT INFORMATION
  Report Type: Spontaneous
  Country: IN (occurrence: IN)
  Receive Date: 20210928
  Receipt Date: 20210928
  Transmission Date: 20211014
  Serious: Yes (Other)
  Sender: FDA-Public Use
  Company Number: IN-TORRENT-00002906

PATIENT
  Age: 64 Year
  Sex: Female

DRUGS (1)
  1. ROSUVASTATIN. [Suspect]
     Active Substance: ROSUVASTATIN
     Indication: CORONARY ARTERIAL STENT INSERTION
     Dosage: UNKNOWN

REACTIONS (1)
  - Necrotising myositis [Recovered/Resolved]
